FAERS Safety Report 5123981-X (Version None)
Quarter: 2006Q3

REPORT INFORMATION
  Report Type: 
  Country: None (occurrence: None)
  Receive Date: 20060811
  Receipt Date: 20060418
  Transmission Date: 20061208
  Serious: No
  Sender: FDA-Public Use
  Company Number: S06-USA-01524-01

PATIENT
  Age: 77 Year
  Sex: Female

DRUGS (4)
  1. NAMENDA [Suspect]
     Indication: DEMENTIA
     Dosage: 10 MG BID PO
     Route: 048
     Dates: start: 20060201
  2. NAMENDA [Suspect]
     Indication: DEMENTIA
     Dosage: 10 MG BID PO
     Route: 048
     Dates: start: 20051101, end: 20060201
  3. SEROQUEL [Concomitant]
  4. DEPAKOTE [Concomitant]

REACTIONS (3)
  - AGGRESSION [None]
  - ANGER [None]
  - HALLUCINATION [None]
